FAERS Safety Report 8256830-1 (Version None)
Quarter: 2012Q2

REPORT INFORMATION
  Report Type: 
  Country: None (occurrence: None)
  Receive Date: 20120403
  Receipt Date: 20120402
  Transmission Date: 20120825
  Serious: Yes (Life-Threatening, Hospitalization)
  Sender: FDA-Public Use
  Company Number: DE-B.I. PHARMACEUTICALS,INC./RIDGEFIELD-2012-DE-00863DE

PATIENT
  Sex: Female
  Weight: 126 kg

DRUGS (11)
  1. PANTOPRAZOL 40 [Concomitant]
     Indication: GASTROINTESTINAL DISORDER
     Dosage: 40 MG
     Route: 048
     Dates: start: 20111013
  2. TORASEMID 10 [Concomitant]
     Indication: CARDIAC FAILURE
  3. DIPYRONE TAB [Concomitant]
     Indication: PAIN
     Dosage: 500 MG
     Route: 048
     Dates: start: 20120118
  4. BISOPROLOL FUMARATE [Concomitant]
     Indication: CARDIAC FAILURE
  5. SIMVASTATIN [Concomitant]
     Indication: HYPERLIPIDAEMIA
     Dosage: 20 MG
     Route: 048
     Dates: start: 20110628
  6. PRADAXA [Suspect]
     Indication: CEREBROVASCULAR ACCIDENT
  7. CITALOPRAM HYDROBROMIDE [Concomitant]
     Indication: DEPRESSION
     Dosage: 10 MG
     Route: 048
     Dates: start: 20120206
  8. TORASEMID 10 [Concomitant]
     Indication: OEDEMA
     Dosage: 10 MG
     Route: 048
     Dates: start: 20110822
  9. PRADAXA [Suspect]
     Indication: ATRIAL FIBRILLATION
     Dosage: 220 MG
     Route: 048
     Dates: start: 20120111, end: 20120314
  10. BISOPROLOL FUMARATE [Concomitant]
     Indication: HYPERTENSION
     Dosage: 6.25 MG
     Route: 048
     Dates: start: 20090513
  11. ALLOBETA 300 [Concomitant]
     Indication: HYPERURICAEMIA
     Dosage: 150 MG
     Route: 048
     Dates: start: 20120105

REACTIONS (4)
  - COMA [None]
  - PULMONARY HAEMORRHAGE [None]
  - HAEMOPTYSIS [None]
  - PNEUMONIA [None]
